FAERS Safety Report 6808295-1 (Version None)
Quarter: 2010Q2

REPORT INFORMATION
  Report Type: 
  Country: None (occurrence: None)
  Receive Date: 20100629
  Receipt Date: 20090608
  Transmission Date: 20101027
  Serious: No
  Sender: FDA-Public Use
  Company Number: US-PFIZER INC-2009202264

PATIENT
  Sex: Male
  Weight: 72.6 kg

DRUGS (4)
  1. VIAGRA [Suspect]
     Indication: ERECTILE DYSFUNCTION
     Dosage: 75 MG, AS NEEDED
  2. ALLOPURINOL [Concomitant]
     Dosage: 300 MG, UNK
     Dates: start: 19980101
  3. WELLBUTRIN [Concomitant]
     Dosage: UNK
     Dates: start: 19920101
  4. LEXAPRO [Concomitant]
     Dosage: 5 MG, 1X/DAY
     Dates: start: 20040101

REACTIONS (3)
  - DRUG INEFFECTIVE [None]
  - INCORRECT DOSE ADMINISTERED [None]
  - NASAL CONGESTION [None]
